FAERS Safety Report 6611775-5 (Version None)
Quarter: 2010Q1

REPORT INFORMATION
  Report Type: 
  Country: None (occurrence: None)
  Receive Date: 20100303
  Receipt Date: 20100222
  Transmission Date: 20100710
  Serious: Yes (Hospitalization, Other)
  Sender: FDA-Public Use
  Company Number: BR-ROCHE-677924

PATIENT
  Sex: Male
  Weight: 65 kg

DRUGS (2)
  1. ROACUTAN [Suspect]
     Dosage: STOP DATE: 2009
     Route: 048
     Dates: start: 20091015
  2. ROACUTAN [Suspect]
     Route: 048
     Dates: start: 20091201, end: 20091225

REACTIONS (7)
  - CHAPPED LIPS [None]
  - DRY EYE [None]
  - LIP DRY [None]
  - PAIN [None]
  - ROAD TRAFFIC ACCIDENT [None]
  - SKIN EXFOLIATION [None]
  - ULNA FRACTURE [None]
